FAERS Safety Report 25754206 (Version 1)
Quarter: 2025Q3

REPORT INFORMATION
  Report Type: Spontaneous
  Country: US (occurrence: CA)
  Receive Date: 20250903
  Receipt Date: 20250903
  Transmission Date: 20251021
  Serious: Yes (Other)
  Sender: GRIFOLS
  Company Number: US-IGSA-BIG0037614

PATIENT
  Age: 46 Year
  Sex: Female

DRUGS (7)
  1. IGIVNEX [Suspect]
     Active Substance: HUMAN IMMUNOGLOBULIN G
     Indication: Small fibre neuropathy
     Dates: start: 20250805, end: 20250808
  2. IGIVNEX [Suspect]
     Active Substance: HUMAN IMMUNOGLOBULIN G
     Indication: Off label use
  3. MONTELUKAST [Concomitant]
     Active Substance: MONTELUKAST
  4. FAMOTIDINE [Concomitant]
     Active Substance: FAMOTIDINE
  5. CETIRIZINE [Concomitant]
     Active Substance: CETIRIZINE HYDROCHLORIDE
  6. LINACLOTIDE [Concomitant]
     Active Substance: LINACLOTIDE
  7. PREDNISOLONE [Concomitant]
     Active Substance: PREDNISOLONE

REACTIONS (6)
  - Phlebitis [Recovered/Resolved]
  - Anaphylactic reaction [Recovered/Resolved]
  - Dysphonia [Recovered/Resolved]
  - Headache [Recovered/Resolved]
  - Malaise [Recovered/Resolved]
  - Throat irritation [Recovered/Resolved]

NARRATIVE: CASE EVENT DATE: 20250805
